FAERS Safety Report 16012747 (Version 2)
Quarter: 2019Q1

REPORT INFORMATION
  Report Type: Spontaneous
  Country: IT (occurrence: IT)
  Receive Date: 20190227
  Receipt Date: 20190307
  Transmission Date: 20190418
  Serious: Yes (Other)
  Sender: FDA-Public Use
  Company Number: IT-TEVA-2019-IT-1017073

PATIENT
  Age: 52 Year
  Sex: Male

DRUGS (1)
  1. MICOFENOLATO MOFETILE AHCL 500 MG COMPRESSE RIVESTITE CON FILM [Suspect]
     Active Substance: MYCOPHENOLATE MOFETIL
     Indication: DERMATOMYOSITIS
     Dosage: 2 GRAM DAILY;
     Route: 048
     Dates: end: 20190125

REACTIONS (3)
  - Dermatomyositis [Not Recovered/Not Resolved]
  - Drug ineffective [Not Recovered/Not Resolved]
  - Pruritus generalised [Not Recovered/Not Resolved]
